FAERS Safety Report 21492760 (Version 1)
Quarter: 2022Q4

REPORT INFORMATION
  Report Type: Spontaneous
  Country: US (occurrence: US)
  Receive Date: 20221021
  Receipt Date: 20221021
  Transmission Date: 20230113
  Serious: Yes (Disabling)
  Sender: FDA-Public Use
  Company Number: US-PFIZER INC-202201245807

PATIENT
  Age: 70 Year
  Sex: Male
  Weight: 101.14 kg

DRUGS (1)
  1. BOSULIF [Suspect]
     Active Substance: BOSUTINIB MONOHYDRATE
     Indication: Chronic myeloid leukaemia
     Dosage: 500 MG, 1X/DAY (WITH FOOD)
     Route: 048

REACTIONS (2)
  - Drug screen positive [Unknown]
  - Pain [Unknown]

NARRATIVE: CASE EVENT DATE: 20221020
